FAERS Safety Report 14332874 (Version 1)
Quarter: 2017Q4

REPORT INFORMATION
  Report Type: Spontaneous
  Country: DE (occurrence: DE)
  Receive Date: 20171228
  Receipt Date: 20171228
  Transmission Date: 20180321
  Serious: Yes (Other)
  Sender: FDA-Public Use
  Company Number: DE-AUROBINDO-AUR-APL-2017-47589

PATIENT

DRUGS (2)
  1. TILIDINE [Concomitant]
     Active Substance: TILIDINE
     Indication: NASOPHARYNGITIS
     Dosage: UNK ()
     Route: 065
  2. OMEPRAZOLE. [Suspect]
     Active Substance: OMEPRAZOLE
     Indication: NASOPHARYNGITIS
     Dosage: UNK ()
     Route: 065
     Dates: start: 201501

REACTIONS (2)
  - Product use in unapproved indication [Unknown]
  - Type I hypersensitivity [Unknown]
